FAERS Safety Report 9515004 (Version 1)
Quarter: 2013Q1

REPORT INFORMATION
  Report Type: Spontaneous
  Country: US (occurrence: None)
  Receive Date: 20130305
  Receipt Date: 20130305
  Transmission Date: 20140127
  Serious: Yes (Other)
  Sender: FDA-Public Use
  Company Number: 163-21880-12121856

PATIENT
  Age: 83 Year
  Sex: Male

DRUGS (9)
  1. REVLIMID [Suspect]
     Indication: LYMPHOPROLIFERATIVE DISORDER
     Dosage: 5 MG, 21 IN 21, PO
     Route: 048
     Dates: start: 20120618
  2. XARELTO (RIVAROXABAN) (UNKNOWN) [Concomitant]
  3. SYMBICORT (SYMBICORT TURBUHALER ^DRACO^) (UNKNOWN) [Concomitant]
  4. PERFOROMIST (FORMOTEROL FUMARATE) (UNKNOWN) [Concomitant]
  5. NIACIN (NICOTINIC ACID) (UNKNOWN) [Concomitant]
  6. MULTIVITAMINS (MULTIVITAMINS) (UNKNOWN) [Concomitant]
  7. FOLIC ACID (FOLIC ACID) (UNKNOWN) [Concomitant]
  8. FINASTERIDE (FINASTERIDE) (UNKNOWN) [Concomitant]
  9. DILTIAZEM HCL (DILTIAZEM HYDROCHLORIDE) (UNKNOWN) [Concomitant]

REACTIONS (1)
  - Pneumonia [None]
